FAERS Safety Report 6402207-0 (Version None)
Quarter: 2009Q4

REPORT INFORMATION
  Report Type: 
  Country: None (occurrence: None)
  Receive Date: 20091015
  Receipt Date: 20091007
  Transmission Date: 20100525
  Serious: Yes (Other)
  Sender: FDA-Public Use
  Company Number: US-GENENTECH-205489

PATIENT
  Age: 58 Year
  Sex: Female

DRUGS (24)
  1. TRASTUZUMAB [Suspect]
     Indication: BREAST CANCER
     Dosage: 4 MG/KG, SINGLE
     Route: 042
     Dates: start: 20031211, end: 20031211
  2. TRASTUZUMAB [Suspect]
     Dosage: 2 MG/KG, 1/WEEK
     Route: 042
     Dates: end: 20040305
  3. TAXOTERE [Suspect]
     Indication: BREAST CANCER
     Dosage: 132 MG, Q3W
     Route: 042
     Dates: start: 20031212
  4. CARBOPLATIN [Suspect]
     Indication: BREAST CANCER
     Dosage: 672 MG, Q3W
     Route: 042
     Dates: start: 20031212
  5. LIPITOR [Concomitant]
     Dosage: 10 MG, UNK
     Route: 048
     Dates: start: 20020227
  6. MULTI-VITAMINS [Concomitant]
     Dosage: UNK, QD
     Route: 048
     Dates: start: 19850101
  7. GLUCOSAMINE [Concomitant]
     Dosage: 1000 MG, UNK
     Route: 048
     Dates: start: 20020101
  8. COMPAZINE [Concomitant]
     Dosage: 10 MG, PRN
     Route: 048
     Dates: start: 20031218
  9. ATIVAN [Concomitant]
     Dosage: 1 MG, UNK
  10. AMBIEN [Concomitant]
     Dosage: UNK, QHS
     Route: 048
  11. SONATA [Concomitant]
     Dosage: 10 MG, UNK
     Route: 048
     Dates: start: 20040213
  12. ELAVIL [Concomitant]
     Dosage: 100 MG, UNK
     Dates: start: 20040126, end: 20040206
  13. LEVAQUIN [Concomitant]
     Dosage: 500 MG, UNK
     Route: 048
     Dates: start: 20040217, end: 20040224
  14. MORPHINE [Concomitant]
     Dosage: 4 MG, UNK
     Route: 042
     Dates: start: 20040218, end: 20040218
  15. ZANTAC [Concomitant]
     Dosage: 50 MG, UNK
     Route: 042
     Dates: start: 20040218, end: 20040218
  16. TYLENOL #1 (UNITED STATES) [Concomitant]
     Indication: ARTHRALGIA
     Dosage: 1000 MG, UNK
     Route: 048
     Dates: start: 20031211, end: 20031211
  17. BENADRYL [Concomitant]
     Indication: PROPHYLAXIS
     Dosage: 25 MG, SINGLE
     Route: 042
     Dates: start: 20031211, end: 20031211
  18. DECADRON [Concomitant]
     Indication: PROPHYLAXIS
     Route: 042
     Dates: start: 20031211, end: 20040213
  19. ANZEMET [Concomitant]
     Indication: PROPHYLAXIS
     Route: 042
     Dates: start: 20031212, end: 20040213
  20. KYTRIL [Concomitant]
     Indication: NAUSEA
     Dosage: UNK, PRN
     Route: 062
     Dates: start: 20040108, end: 20040130
  21. SCOPOLAMINE [Concomitant]
     Indication: NAUSEA
     Dosage: UNK, PRN
     Route: 062
     Dates: start: 20040109, end: 20040115
  22. SODIUM CHLORIDE [Concomitant]
     Indication: DEHYDRATION
  23. EMEND [Concomitant]
     Indication: PREMEDICATION
     Dosage: 125 MG, UNK
     Route: 048
     Dates: start: 20040312
  24. NEXIUM [Concomitant]
     Indication: GASTROOESOPHAGEAL REFLUX DISEASE
     Dosage: 20 MG, UNK
     Route: 048
     Dates: start: 20040305

REACTIONS (1)
  - PULMONARY EMBOLISM [None]
